FAERS Safety Report 4942670-5 (Version None)
Quarter: 2006Q1

REPORT INFORMATION
  Report Type: 
  Country: None (occurrence: None)
  Receive Date: 20060309
  Receipt Date: 20060221
  Transmission Date: 20060701
  Serious: Yes (Hospitalization)
  Sender: FDA-Public Use
  Company Number: 8015234

PATIENT
  Age: 66 Year
  Sex: Male

DRUGS (5)
  1. LEVETIRACETAM [Suspect]
     Indication: EPILEPSY
     Dosage: 500 MG/D PO
     Route: 048
     Dates: start: 20030425, end: 20030508
  2. LEVETIRACETAM [Suspect]
     Indication: EPILEPSY
     Dosage: 1000 MG/D PO
     Route: 048
     Dates: start: 20030509, end: 20040517
  3. LEVETIRACETAM [Concomitant]
     Indication: EPILEPSY
     Dosage: 1000 MG/D PO
     Route: 048
     Dates: start: 20050919
  4. ENAHEXAL [Concomitant]
  5. BISOPROLOL [Concomitant]

REACTIONS (4)
  - BLINDNESS TRANSIENT [None]
  - BLINDNESS UNILATERAL [None]
  - CAROTID ARTERY STENOSIS [None]
  - CEREBRAL ISCHAEMIA [None]
